FAERS Safety Report 25657075 (Version 1)
Quarter: 2025Q3

REPORT INFORMATION
  Report Type: Spontaneous
  Country: EU (occurrence: EU)
  Receive Date: 20250808
  Receipt Date: 20250808
  Transmission Date: 20251020
  Serious: Yes (Other)
  Sender: Unknown Manufacturer
  Company Number: EU-MIRUM PHARMACEUTICALS, INC.-BE-MIR-25-00524

PATIENT

DRUGS (5)
  1. LIVMARLI [Suspect]
     Active Substance: MARALIXIBAT CHLORIDE
     Indication: Progressive familial intrahepatic cholestasis
     Dosage: 570 MICROGRAM/KILOGRAM, BID
     Route: 065
     Dates: start: 20250715, end: 20250730
  2. LIVMARLI [Suspect]
     Active Substance: MARALIXIBAT CHLORIDE
     Dosage: 285 MICROGRAM/KILOGRAM, BID
     Route: 065
     Dates: start: 20250708, end: 20250714
  3. LIVMARLI [Suspect]
     Active Substance: MARALIXIBAT CHLORIDE
     Dosage: 285 MICROGRAM/KILOGRAM, QD
     Route: 065
     Dates: start: 20250701, end: 20250707
  4. URSODIOL [Concomitant]
     Active Substance: URSODIOL
     Indication: Product used for unknown indication
     Route: 065
  5. RIFAMPIN [Concomitant]
     Active Substance: RIFAMPIN
     Indication: Product used for unknown indication
     Route: 065

REACTIONS (3)
  - Bilirubin conjugated increased [Unknown]
  - Alanine aminotransferase increased [Unknown]
  - Off label use [Unknown]

NARRATIVE: CASE EVENT DATE: 20250701
